FAERS Safety Report 8024711-4 (Version None)
Quarter: 2012Q1

REPORT INFORMATION
  Report Type: 
  Country: None (occurrence: None)
  Receive Date: 20120105
  Receipt Date: 20111222
  Transmission Date: 20120608
  Serious: Yes (Life-Threatening)
  Sender: FDA-Public Use
  Company Number: JP-UCBSA-046666

PATIENT
  Age: 5 Year
  Sex: Female
  Weight: 9.7 kg

DRUGS (20)
  1. DANTRIUM [Suspect]
     Dosage: DAILY DOSE: 3 MG
     Route: 048
     Dates: start: 20080601
  2. MYSTAN [Suspect]
     Route: 048
     Dates: start: 20090420
  3. ALINAMIN-F [Concomitant]
     Route: 048
     Dates: start: 20071130
  4. GASMOTIN [Concomitant]
     Route: 048
     Dates: start: 20080101
  5. KEPPRA [Suspect]
     Indication: EPILEPSY
     Dosage: DAILY DOSE: 550 MG
     Route: 048
     Dates: start: 20110101
  6. KEPPRA [Suspect]
     Route: 048
     Dates: start: 20110523, end: 20110605
  7. ARTANE [Concomitant]
     Route: 048
     Dates: start: 20080601
  8. MUCODYNE [Concomitant]
     Route: 048
     Dates: start: 20110101
  9. KEPPRA [Suspect]
     Dosage: DAILY DOSE: 450 MG
     Route: 048
     Dates: start: 20111126, end: 20110101
  10. PHENOBARBITAL TAB [Suspect]
     Dosage: DAILY DOSE: 100 MG
     Route: 048
     Dates: start: 20080501
  11. LIORESAL [Suspect]
     Dosage: DAILY DOSE: 6 MG
     Route: 048
     Dates: start: 20101001
  12. LANSOPRAZOLE [Concomitant]
     Dosage: DAILY DOSE: 7.5 MG
     Route: 048
     Dates: start: 20091210
  13. KEPPRA [Suspect]
     Route: 048
     Dates: start: 20111024, end: 20111125
  14. KEPPRA [Suspect]
     Route: 048
     Dates: start: 20110509, end: 20110522
  15. LEXOTAN [Suspect]
     Route: 048
     Dates: start: 20090819
  16. NEUQUINON [Concomitant]
     Dosage: DAILY DOSE: 30 MG
     Route: 048
     Dates: start: 20080801
  17. KEPPRA [Suspect]
     Route: 048
     Dates: start: 20110606, end: 20111023
  18. HALOPERIDOL [Suspect]
     Dosage: 0.5 MG
     Route: 048
     Dates: start: 20080801
  19. MUCOSOLVAN DS FOR PEDIATRIC [Concomitant]
     Dosage: DAILY DOSE: 9 MG
     Route: 048
     Dates: start: 20110101
  20. PROMACTA [Concomitant]
     Dosage: DAILY DOSE: 20 MG
     Route: 048
     Dates: start: 20111027

REACTIONS (2)
  - APNOEA [None]
  - SOMNOLENCE [None]
